FAERS Safety Report 6980184-1 (Version None)
Quarter: 2010Q3

REPORT INFORMATION
  Report Type: 
  Country: None (occurrence: None)
  Receive Date: 20100914
  Receipt Date: 20100907
  Transmission Date: 20110219
  Serious: Yes (Hospitalization)
  Sender: FDA-Public Use
  Company Number: US-JNJFOC-20100903160

PATIENT
  Sex: Female
  Weight: 63.5 kg

DRUGS (2)
  1. TYLENOL W/ CODEINE NO. 3 [Suspect]
     Indication: RADICULAR PAIN
     Route: 048
  2. COLACE [Concomitant]
     Indication: ABNORMAL FAECES
     Route: 048

REACTIONS (1)
  - HAEMORRHOIDS [None]
